FAERS Safety Report 20192247 (Version 1)
Quarter: 2021Q4

REPORT INFORMATION
  Report Type: Report from Study
  Country: US (occurrence: US)
  Receive Date: 20211216
  Receipt Date: 20211216
  Transmission Date: 20220303
  Serious: Yes (Hospitalization, Other)
  Sender: FDA-Public Use
  Company Number: US-AMGEN-USASL2021185963

PATIENT
  Age: 91 Year
  Sex: Male

DRUGS (1)
  1. ENBREL [Suspect]
     Active Substance: ETANERCEPT
     Indication: Arthritis
     Dosage: 50 MILLIGRAM, QWK
     Route: 065
     Dates: end: 202111

REACTIONS (5)
  - Pleural effusion [Unknown]
  - Cough [Unknown]
  - Asthenia [Unknown]
  - Hypoaesthesia [Unknown]
  - Arthritis [Unknown]

NARRATIVE: CASE EVENT DATE: 20210101
